FAERS Safety Report 5916600-3 (Version None)
Quarter: 2008Q4

REPORT INFORMATION
  Report Type: 
  Country: None (occurrence: None)
  Receive Date: 20081013
  Receipt Date: 20081004
  Transmission Date: 20090506
  Serious: Yes (Disabling, Other)
  Sender: FDA-Public Use
  Company Number: GB-MERCK-0504GBR00037

PATIENT
  Age: 34 Year
  Sex: Female

DRUGS (8)
  1. HYDROCORTISONE 10MG TAB [Suspect]
     Route: 048
     Dates: start: 19880101, end: 19910101
  2. HYDROCORTISONE 10MG TAB [Suspect]
     Route: 048
     Dates: start: 19910101
  3. HYDROCORTISONE 10MG TAB [Suspect]
     Route: 048
  4. HYDROCORTISONE 10MG TAB [Suspect]
     Route: 048
     Dates: start: 20050101
  5. HYDROCORTISONE 10MG TAB [Suspect]
     Route: 048
     Dates: start: 20050101
  6. LEVOTHYROXINE SODIUM [Concomitant]
     Route: 065
  7. DESMOPRESSIN [Concomitant]
     Route: 065
  8. [THERAPY UNSPECIFIED] [Concomitant]
     Route: 065

REACTIONS (25)
  - ASTHENIA [None]
  - BINGE EATING [None]
  - CHRONIC FATIGUE SYNDROME [None]
  - CONVULSION [None]
  - DEHYDRATION [None]
  - DIABETES INSIPIDUS [None]
  - DISABILITY [None]
  - GAIT DISTURBANCE [None]
  - GALLBLADDER DISORDER [None]
  - GENERAL SYMPTOM [None]
  - HEADACHE [None]
  - HIATUS HERNIA [None]
  - IMMUNE SYSTEM DISORDER [None]
  - INTERVERTEBRAL DISC PROTRUSION [None]
  - MALAISE [None]
  - MEMORY IMPAIRMENT [None]
  - OEDEMA PERIPHERAL [None]
  - OSTEOPOROSIS [None]
  - OVERDOSE [None]
  - PARAESTHESIA [None]
  - SPINAL OSTEOARTHRITIS [None]
  - SYNCOPE [None]
  - VOMITING [None]
  - WEIGHT DECREASED [None]
  - WEIGHT INCREASED [None]
